FAERS Safety Report 9247864 (Version 1)
Quarter: 2013Q1

REPORT INFORMATION
  Report Type: Spontaneous
  Country: US (occurrence: None)
  Receive Date: 20121130
  Receipt Date: 20121130
  Transmission Date: 20140127
  Serious: Yes (Hospitalization)
  Sender: FDA-Public Use
  Company Number: 343526

PATIENT
  Age: 45 Year
  Sex: Male

DRUGS (3)
  1. NOVOLOG [Suspect]
     Indication: TYPE 1 DIABETES MELLITUS
     Route: 058
  2. LANTUS (INSULIN GLARGINE) [Suspect]
     Indication: TYPE 1 DIABETES MELLITUS
  3. PROTONIX (PANTOPRAZOLE SODIUM SESQUIHYDRATE) [Concomitant]

REACTIONS (1)
  - Hypoglycaemia [None]
